FAERS Safety Report 12006399 (Version 2)
Quarter: 2016Q1

REPORT INFORMATION
  Report Type: Spontaneous
  Country: US (occurrence: US)
  Receive Date: 20160204
  Receipt Date: 20160317
  Transmission Date: 20160526
  Serious: No
  Sender: FDA-Public Use
  Company Number: CHPA2016US001718

PATIENT
  Age: 75 Year
  Sex: Male

DRUGS (1)
  1. VOLTAREN [Suspect]
     Active Substance: DICLOFENAC SODIUM
     Indication: ARTHROPATHY
     Dosage: 3 QUARTER INCH, QD
     Route: 061
     Dates: start: 2015

REACTIONS (5)
  - Drug dispensed to wrong patient [Unknown]
  - Therapeutic response unexpected [Unknown]
  - Product use issue [Unknown]
  - Wrong technique in product usage process [Unknown]
  - Inappropriate schedule of drug administration [Unknown]

NARRATIVE: CASE EVENT DATE: 2015
